FAERS Safety Report 6810237-X (Version None)
Quarter: 2010Q2

REPORT INFORMATION
  Report Type: 
  Country: None (occurrence: None)
  Receive Date: 20100630
  Receipt Date: 20100625
  Transmission Date: 20101027
  Serious: Yes (Other)
  Sender: FDA-Public Use
  Company Number: US-PFIZER INC-2010079866

PATIENT
  Sex: Female
  Weight: 77.098 kg

DRUGS (3)
  1. AROMASIN [Suspect]
     Indication: BREAST CANCER
     Dosage: 25 MG, DAILY
     Route: 048
     Dates: start: 20001101, end: 20060301
  2. AROMASIN [Suspect]
     Dosage: 25 MG, 1X/DAY
     Route: 048
     Dates: start: 20071201
  3. LIPITOR [Concomitant]
     Indication: BLOOD CHOLESTEROL INCREASED
     Dosage: UNK

REACTIONS (4)
  - BREAST CANCER [None]
  - HIRSUTISM [None]
  - MUSCLE DISORDER [None]
  - NEOPLASM MALIGNANT [None]
